FAERS Safety Report 17902911 (Version 2)
Quarter: 2020Q3

REPORT INFORMATION
  Report Type: Spontaneous
  Country: ES (occurrence: ES)
  Receive Date: 20200617
  Receipt Date: 20200707
  Transmission Date: 20201103
  Serious: Yes (Other)
  Sender: FDA-Public Use
  Company Number: ES-US-PROVELL PHARMACEUTICALS LLC-E2B_90078108

PATIENT
  Age: 26 Year
  Sex: Female
  Weight: 60 kg

DRUGS (1)
  1. EUTIROX [Suspect]
     Active Substance: LEVOTHYROXINE SODIUM
     Indication: AUTOIMMUNE HYPOTHYROIDISM
     Route: 048
     Dates: start: 20200513

REACTIONS (5)
  - Vomiting [Recovered/Resolved]
  - Diarrhoea [Recovered/Resolved]
  - Product formulation issue [Recovered/Resolved]
  - Abdominal pain [Recovered/Resolved]
  - Musculoskeletal chest pain [Recovered/Resolved]

NARRATIVE: CASE EVENT DATE: 20200514
